FAERS Safety Report 16899129 (Version 2)
Quarter: 2020Q1

REPORT INFORMATION
  Report Type: Other
  Country: PT (occurrence: PT)
  Receive Date: 20191009
  Receipt Date: 20200204
  Transmission Date: 20200409
  Serious: Yes (Life-Threatening, Hospitalization, Other)
  Sender: FDA-Public Use
  Company Number: PT-EMD SERONO-E2B_90052049

PATIENT
  Age: 48 Year
  Sex: Female
  Weight: 77 kg

DRUGS (13)
  1. CHROMIUM PICOLINATE [Interacting]
     Active Substance: CHROMIUM PICOLINATE
     Indication: WEIGHT DECREASED
     Dosage: 200 MCG BID
     Route: 048
     Dates: start: 201708, end: 201804
  2. CENTELLA ASIATICA [Interacting]
     Active Substance: CENTELLA ASIATICA WHOLE
     Indication: WEIGHT DECREASED
     Route: 048
     Dates: start: 201708, end: 201804
  3. FLECAINIDE [Concomitant]
     Active Substance: FLECAINIDE
     Indication: VENTRICULAR EXTRASYSTOLES
     Route: 048
     Dates: start: 201605
  4. TOPIRAMATE. [Interacting]
     Active Substance: TOPIRAMATE
     Indication: WEIGHT DECREASED
     Route: 048
     Dates: start: 201708, end: 201804
  5. CASCARA SAGRADA                    /00143201/ [Interacting]
     Active Substance: FRANGULA PURSHIANA BARK
     Indication: WEIGHT DECREASED
     Dosage: 2 MG, QD
     Route: 048
     Dates: start: 201708, end: 201804
  6. MINULET [Interacting]
     Active Substance: ETHINYL ESTRADIOL\GESTODENE
     Indication: CONTRACEPTION
     Dosage: THERAPY START DATE: NOV 2017
     Route: 048
     Dates: end: 201804
  7. METFORMIN [Suspect]
     Active Substance: METFORMIN HYDROCHLORIDE
     Indication: WEIGHT DECREASED
     Dosage: 200 MG
     Route: 048
     Dates: start: 201708, end: 201804
  8. BUPROPION. [Suspect]
     Active Substance: BUPROPION
     Indication: WEIGHT DECREASED
     Route: 048
     Dates: start: 201708, end: 201804
  9. SENNA                              /00142201/ [Suspect]
     Active Substance: SENNA LEAF
     Indication: PRODUCT USED FOR UNKNOWN INDICATION
     Dosage: 20 MG
  10. PHENOLPHTHALEIN [Interacting]
     Active Substance: PHENOLPHTHALEIN
     Indication: WEIGHT DECREASED
     Route: 048
     Dates: start: 201708, end: 201804
  11. ORLISTAT. [Interacting]
     Active Substance: ORLISTAT
     Indication: WEIGHT DECREASED
     Route: 048
     Dates: start: 201708, end: 201804
  12. FUROSEMIDE. [Interacting]
     Active Substance: FUROSEMIDE
     Indication: WEIGHT DECREASED
     Route: 048
     Dates: start: 201708, end: 201804
  13. CHLORDIAZEPOXIDE. [Interacting]
     Active Substance: CHLORDIAZEPOXIDE
     Indication: WEIGHT DECREASED
     Dosage: 20 MG, QD
     Route: 048
     Dates: start: 201708, end: 201804

REACTIONS (11)
  - Off label use [Unknown]
  - Fatigue [Recovering/Resolving]
  - Bradyphrenia [Recovering/Resolving]
  - Product use in unapproved indication [Unknown]
  - Slow response to stimuli [Recovering/Resolving]
  - Thalamic infarction [Not Recovered/Not Resolved]
  - Headache [Recovering/Resolving]
  - Psychomotor retardation [Recovering/Resolving]
  - Intentional product misuse [Unknown]
  - Drug interaction [Unknown]
  - Cerebral venous thrombosis [Recovering/Resolving]

NARRATIVE: CASE EVENT DATE: 201708
